FAERS Safety Report 19820667 (Version 1)
Quarter: 2021Q3

REPORT INFORMATION
  Report Type: Spontaneous
  Country: US (occurrence: US)
  Receive Date: 20210912
  Receipt Date: 20210912
  Transmission Date: 20211014
  Serious: No
  Sender: FDA-Public Use
  Company Number: None

PATIENT
  Age: 32 Month
  Sex: Female

DRUGS (1)
  1. CAROSPIR [Suspect]
     Active Substance: SPIRONOLACTONE
     Indication: CARDIAC DISORDER
     Dates: start: 20210803, end: 20210910

REACTIONS (4)
  - Manufacturing product shipping issue [None]
  - Poor quality product administered [None]
  - Dyspnoea [None]
  - Product storage error [None]

NARRATIVE: CASE EVENT DATE: 20210910
